FAERS Safety Report 6577807-8 (Version None)
Quarter: 2010Q1

REPORT INFORMATION
  Report Type: 
  Country: None (occurrence: None)
  Receive Date: 20100211
  Receipt Date: 20100202
  Transmission Date: 20100710
  Serious: Yes (Other)
  Sender: FDA-Public Use
  Company Number: JP-ROCHE-677811

PATIENT
  Sex: Male
  Weight: 55 kg

DRUGS (10)
  1. TAMIFLU [Suspect]
     Indication: INFLUENZA
     Route: 048
     Dates: start: 20091212, end: 20091216
  2. CLARITHROMYCIN [Concomitant]
     Dosage: DOSE FORM: PERORAL AGENT
     Route: 048
  3. SALOPYRINE [Concomitant]
     Dosage: DOSE FORM: PERORAL LIQUID PREPARATION. DRUG NAME: SULPYRINE
     Route: 048
  4. DIASTASE [Concomitant]
     Route: 048
  5. LYSOZYME HYDROCHLORIDE [Concomitant]
     Route: 048
  6. GENTIAN [Concomitant]
     Route: 054
  7. DEXTROMETHORPHAN HYDROBROMIDE [Concomitant]
     Route: 048
  8. METHYLEPHEDRINE HYDROCHLORIDE-DL [Concomitant]
     Route: 048
  9. KYORIN AP-2 [Concomitant]
     Dosage: DOSE FORM: GRANULATED POWDER
     Route: 048
  10. CHLORPHENIRAMINE MALEATE [Concomitant]
     Dosage: DOSE FORM: PERORAL AGENT
     Route: 048

REACTIONS (1)
  - HEPATITIS FULMINANT [None]
